FAERS Safety Report 8407908-0 (Version None)
Quarter: 2012Q2

REPORT INFORMATION
  Report Type: 
  Country: None (occurrence: None)
  Receive Date: 20120604
  Receipt Date: 20120525
  Transmission Date: 20120825
  Serious: Yes (Life-Threatening, Hospitalization)
  Sender: FDA-Public Use
  Company Number: CA-ROCHE-1071225

PATIENT
  Sex: Female
  Weight: 86.26 kg

DRUGS (19)
  1. MABTHERA [Suspect]
     Indication: RHEUMATOID ARTHRITIS
     Dosage: LAST DOSE ON 12/SEP/2011
     Route: 042
     Dates: start: 20110210, end: 20120517
  2. LEVEMIR [Concomitant]
  3. VITAMIN B-12 [Concomitant]
  4. VITAMIN C [Concomitant]
  5. CALCIUM/VITAMIN D [Concomitant]
  6. METOPROLOL TARTRATE [Concomitant]
  7. VASOTEC [Concomitant]
  8. PREVACID [Concomitant]
  9. EZETIMIBE [Concomitant]
  10. SALAZOPYRIN [Concomitant]
  11. PREDNISONE [Concomitant]
  12. ACETAMINOPHEN [Concomitant]
     Indication: PREMEDICATION
  13. ATACAND [Concomitant]
  14. NOVORAPID [Concomitant]
  15. PLAVIX [Concomitant]
  16. ASPIRIN [Concomitant]
  17. METFORMIN HCL [Concomitant]
  18. LIPITOR [Concomitant]
  19. METHYLPREDNISOLONE [Concomitant]
     Indication: PREMEDICATION
     Route: 042

REACTIONS (3)
  - RESPIRATORY DISTRESS [None]
  - THROAT IRRITATION [None]
  - CEREBROVASCULAR ACCIDENT [None]
